FAERS Safety Report 7622046-2 (Version None)
Quarter: 2011Q3

REPORT INFORMATION
  Report Type: 
  Country: None (occurrence: None)
  Receive Date: 20110720
  Receipt Date: 20110118
  Transmission Date: 20111222
  Serious: Yes (Life-Threatening, Hospitalization, Other)
  Sender: FDA-Public Use
  Company Number: US-BAYER-200929748NA

PATIENT
  Age: 26 Year
  Sex: Female
  Weight: 61 kg

DRUGS (6)
  1. YAZ [Suspect]
     Indication: ORAL CONTRACEPTION
     Route: 048
     Dates: start: 20070101, end: 20070805
  2. CIPROFLOXACIN HCL [Concomitant]
     Indication: URINARY TRACT INFECTION
  3. ANTIBIOTICS [Concomitant]
     Indication: URINARY TRACT INFECTION
  4. TYLENOL-500 [Concomitant]
  5. IBUPROFEN [Concomitant]
  6. IBUPROFEN (ADVIL) [Concomitant]

REACTIONS (11)
  - PYREXIA [None]
  - ALOPECIA [None]
  - PULMONARY EMBOLISM [None]
  - CHEST PAIN [None]
  - CHILLS [None]
  - FATIGUE [None]
  - DYSPNOEA [None]
  - PALPITATIONS [None]
  - MONONUCLEOSIS SYNDROME [None]
  - PAIN IN EXTREMITY [None]
  - SINUS TACHYCARDIA [None]
